FAERS Safety Report 24696306 (Version 1)
Quarter: 2024Q4

REPORT INFORMATION
  Report Type: Spontaneous
  Country: CA (occurrence: CA)
  Receive Date: 20241204
  Receipt Date: 20241204
  Transmission Date: 20250114
  Serious: Yes (Other)
  Sender: GLAXOSMITHKLINE
  Company Number: CA-GSK-CA2024AMR149468

PATIENT

DRUGS (7)
  1. VALACYCLOVIR [Interacting]
     Active Substance: VALACYCLOVIR HYDROCHLORIDE
     Indication: Herpes simplex
     Dosage: 500 MG, QD
     Route: 048
  2. DANDELION [Interacting]
     Active Substance: TARAXACUM OFFICINALE POLLEN
     Indication: Dermatitis
     Dosage: UNK,TEA BAG
     Route: 048
  3. ARTICHOKE [Concomitant]
     Active Substance: ARTICHOKE
     Indication: Product used for unknown indication
     Dosage: UNK
  4. DIETARY SUPPLEMENT\GRAPE SEED EXTRACT [Concomitant]
     Active Substance: DIETARY SUPPLEMENT\GRAPE SEED EXTRACT
     Indication: Product used for unknown indication
     Dosage: UNK
  5. DIETARY SUPPLEMENT\HERBALS\MILK THISTLE [Concomitant]
     Active Substance: MILK THISTLE
     Indication: Product used for unknown indication
     Dosage: UNK
     Route: 065
  6. POLYSPORIN TRIPLE [Concomitant]
     Indication: Product used for unknown indication
     Dosage: UNK,TOPICAL
  7. VITAFUSION MULTIVITES [Concomitant]
     Indication: Product used for unknown indication
     Dosage: UNK,ANTIBIOTIC

REACTIONS (2)
  - Drug interaction [Recovering/Resolving]
  - Coagulation time prolonged [Recovering/Resolving]
